FAERS Safety Report 14177407 (Version 1)
Quarter: 2017Q4

REPORT INFORMATION
  Report Type: Spontaneous
  Country: FR (occurrence: FR)
  Receive Date: 20171110
  Receipt Date: 20171110
  Transmission Date: 20180321
  Serious: Yes (Other)
  Sender: FDA-Public Use
  Company Number: FR-MERCK KGAA-2033793

PATIENT
  Age: 33 Year
  Sex: Female

DRUGS (1)
  1. NOVOTHYROX [Suspect]
     Active Substance: LEVOTHYROXINE SODIUM
     Indication: HYPOTHYROIDISM
     Route: 048
     Dates: start: 20170627

REACTIONS (8)
  - Thirst [Unknown]
  - Feeling cold [Unknown]
  - Dry mouth [Unknown]
  - Disturbance in attention [Unknown]
  - Blood thyroid stimulating hormone [Unknown]
  - Abdominal pain upper [Not Recovered/Not Resolved]
  - Fatigue [Recovering/Resolving]
  - Palpitations [Unknown]

NARRATIVE: CASE EVENT DATE: 201707
